FAERS Safety Report 10040969 (Version 1)
Quarter: 2014Q1

REPORT INFORMATION
  Report Type: Spontaneous
  Country: US (occurrence: US)
  Receive Date: 20140327
  Receipt Date: 20140327
  Transmission Date: 20141002
  Serious: No
  Sender: FDA-Public Use
  Company Number: US-PFIZER INC-2014086001

PATIENT
  Age: 84 Year
  Sex: Female

DRUGS (8)
  1. CELEBREX [Suspect]
     Dosage: UNK
  2. COZAAR [Suspect]
     Dosage: UNK
  3. CYMBALTA [Suspect]
     Dosage: UNK
  4. GLUCOPHAGE [Suspect]
     Dosage: UNK
  5. LOTENSIN [Suspect]
     Dosage: UNK
  6. MOBIC [Suspect]
     Dosage: UNK
  7. TIAZAC [Suspect]
     Dosage: UNK
  8. ULTRAM [Suspect]
     Dosage: UNK

REACTIONS (1)
  - Drug hypersensitivity [Unknown]
